FAERS Safety Report 4826259-4 (Version None)
Quarter: 2005Q4

REPORT INFORMATION
  Report Type: 
  Country: None (occurrence: None)
  Receive Date: 20051014
  Receipt Date: 20050727
  Transmission Date: 20060501
  Serious: No
  Sender: FDA-Public Use
  Company Number: 2005SP002091

PATIENT
  Age: 54 Year
  Sex: Female
  Weight: 74.8435 kg

DRUGS (5)
  1. LUNESTA [Suspect]
     Indication: SLEEP APNOEA SYNDROME
     Dosage: 1 MG; HS; ORAL
     Route: 048
     Dates: start: 20050716, end: 20050701
  2. BUSPAR [Concomitant]
  3. SOMA [Concomitant]
  4. CLONAZEPAM [Concomitant]
  5. AMBIEN [Concomitant]

REACTIONS (2)
  - DYSGEUSIA [None]
  - INSOMNIA [None]
